FAERS Safety Report 4315267-8 (Version None)
Quarter: 2004Q1

REPORT INFORMATION
  Report Type: 
  Country: None (occurrence: None)
  Receive Date: 20040309
  Receipt Date: 20040227
  Transmission Date: 20041129
  Serious: Yes (Hospitalization)
  Sender: FDA-Public Use
  Company Number: UK066545

PATIENT
  Age: 49 Year
  Sex: Female

DRUGS (6)
  1. NEULASTA [Suspect]
     Indication: CHEMOTHERAPY
     Dosage: 6 MG 1 IN 2 WEEKS SC
     Route: 058
     Dates: start: 20040123, end: 20040206
  2. PACLITAXEL [Suspect]
     Dosage: 270 MG, 1 IN 2 WEEKS, IV
     Route: 042
     Dates: start: 20040123
  3. DEXAMETHASONE [Concomitant]
  4. TROPISETRON [Concomitant]
  5. CHLORPHENIRAMINE MALEATE [Concomitant]
  6. RANITIDINE [Concomitant]

REACTIONS (5)
  - ABDOMINAL PAIN [None]
  - HYPOTENSION [None]
  - PRODUCTIVE COUGH [None]
  - PYREXIA [None]
  - SYNCOPE [None]
